FAERS Safety Report 20749480 (Version 2)
Quarter: 2022Q2

REPORT INFORMATION
  Report Type: Report from Study
  Country: US (occurrence: US)
  Receive Date: 20220426
  Receipt Date: 20220521
  Transmission Date: 20220720
  Serious: Yes (Death)
  Sender: FDA-Public Use
  Company Number: US-NOVARTISPH-NVSC2022US094409

PATIENT
  Sex: Female
  Weight: 49.887 kg

DRUGS (1)
  1. LAMPRENE [Suspect]
     Active Substance: CLOFAZIMINE
     Indication: Mycobacterium avium complex infection
     Dosage: 100 MG
     Route: 048
     Dates: start: 20220106

REACTIONS (2)
  - Chronic obstructive pulmonary disease [Fatal]
  - Dyspnoea [Unknown]
